FAERS Safety Report 8738308 (Version 3)
Quarter: 2014Q3

REPORT INFORMATION
  Report Type: Spontaneous
  Country: US (occurrence: US)
  Receive Date: 20120823
  Receipt Date: 20140811
  Transmission Date: 20150326
  Serious: Yes (Hospitalization, Other)
  Sender: FDA-Public Use
  Company Number: US-BAYER-2012-085316

PATIENT
  Age: 31 Year
  Sex: Female
  Weight: 61 kg

DRUGS (39)
  1. FLUTICASONE PROPIONATE W/SALMETEROL XINAFOATE [Concomitant]
     Active Substance: FLUTICASONE PROPIONATE\SALMETEROL XINAFOATE
     Dosage: 250/50 1 PUFF AS Q 12 DAILY
     Dates: start: 20090309
  2. DILAUDID [Concomitant]
     Active Substance: HYDROMORPHONE HYDROCHLORIDE
     Indication: TOOTH ABSCESS
  3. HYDROCODONE/ACETAMINOPHEN [Concomitant]
     Active Substance: ACETAMINOPHEN\HYDROCODONE
     Dosage: 5MG-500MG TABLET Q 6 HOURS
     Route: 048
     Dates: start: 20090429, end: 20090502
  4. BACTRIM [Concomitant]
     Active Substance: SULFAMETHOXAZOLE\TRIMETHOPRIM
  5. LORTAB [Concomitant]
     Active Substance: ACETAMINOPHEN\HYDROCODONE BITARTRATE
     Indication: PAIN
     Dosage: 5/500 TABLETS 1 TO 2 Q 6 HR AS NEEDED (1-2 Q 4-6 HOURS)
     Route: 048
     Dates: start: 20090207, end: 20090216
  6. PHENERGAN [Concomitant]
     Active Substance: PROMETHAZINE HYDROCHLORIDE
     Indication: DISCOMFORT
     Dosage: 25 MG, 4-6 HOURS
     Dates: start: 20090216
  7. PROAIR HFA [Concomitant]
     Active Substance: ALBUTEROL SULFATE
     Indication: ASTHMA
     Dosage: 1-2 PUFFS Q. 4-6 HOURS, PRN
     Dates: start: 20090207, end: 20090507
  8. IBUPROFEN. [Concomitant]
     Active Substance: IBUPROFEN
     Dosage: 800 MG, UNK
     Route: 048
     Dates: start: 20090502
  9. PERCOCET [Concomitant]
     Active Substance: ACETAMINOPHEN\OXYCODONE HYDROCHLORIDE
     Indication: PAIN
     Dosage: 1-2 Q 4-6 HOURS,PRN
     Dates: start: 20090419
  10. FLAGYL [Concomitant]
     Active Substance: METRONIDAZOLE\METRONIDAZOLE HYDROCHLORIDE
     Dosage: 500 MG, TID
     Route: 048
     Dates: start: 20090207, end: 20090210
  11. TIOTROPIUM BROMIDE [Concomitant]
     Active Substance: TIOTROPIUM BROMIDE
     Dosage: 18 ?G, 1 CAP IN DISPENSING DEVICE
     Dates: start: 20090309
  12. ROCEPHIN [Concomitant]
     Active Substance: CEFTRIAXONE SODIUM
     Indication: URINARY TRACT INFECTION
     Dosage: 1 G, UNK
     Route: 030
     Dates: start: 20090210
  13. LEXAPRO [Concomitant]
     Active Substance: ESCITALOPRAM OXALATE
     Dosage: 20 MG, UNK
     Route: 048
     Dates: start: 20090318
  14. ANTACIDS [Concomitant]
     Active Substance: UNSPECIFIED INGREDIENT
     Indication: CHEST DISCOMFORT
  15. NITROFURANTOIN. [Concomitant]
     Active Substance: NITROFURANTOIN
     Dosage: 50 MG, UNK
     Route: 048
     Dates: start: 20090327
  16. ALBUTEROL. [Concomitant]
     Active Substance: ALBUTEROL
     Dosage: 2 PUFFS, PRN
     Dates: start: 20090210
  17. MACRODANTIN [Concomitant]
     Active Substance: NITROFURANTOIN
     Dosage: 100 MG, QID
     Route: 048
     Dates: start: 20090210
  18. AMITRIPTYLINE [Concomitant]
     Active Substance: AMITRIPTYLINE
     Dosage: 25 MG, 3 TAB HS
     Route: 048
     Dates: start: 20090309, end: 20090507
  19. AUGMENTIN [Concomitant]
     Active Substance: AMOXICILLIN\CLAVULANATE POTASSIUM
     Dosage: 500-125 MG, 1 TABLET
     Dates: start: 20090309
  20. SPIRIVA [Concomitant]
     Active Substance: TIOTROPIUM BROMIDE MONOHYDRATE
     Dosage: 18 ?G,
     Dates: start: 20090207, end: 20090507
  21. NAPROSYN [Concomitant]
     Active Substance: NAPROXEN
     Indication: PAIN
     Route: 048
  22. YAZ [Suspect]
     Active Substance: DROSPIRENONE\ETHINYL ESTRADIOL
     Indication: CONTRACEPTION
     Dosage: UNK
     Dates: start: 200901, end: 200905
  23. ALBUTEROL SULFATE. [Concomitant]
     Active Substance: ALBUTEROL SULFATE
     Dosage: 0.09 MG/ACTUATION-2 PUFFS Q 4-6
     Dates: start: 20090309
  24. MOTRIN [Concomitant]
     Active Substance: IBUPROFEN
     Indication: CHEST DISCOMFORT
     Dosage: 600 MG, PRN
     Route: 048
     Dates: start: 20090419
  25. DILAUDID [Concomitant]
     Active Substance: HYDROMORPHONE HYDROCHLORIDE
     Indication: ORAL PAIN
     Dosage: 1 MG, UNK
     Route: 030
     Dates: start: 20090216, end: 20090419
  26. PENICILLIN G POTASSIUM. [Concomitant]
     Active Substance: PENICILLIN G POTASSIUM
     Dosage: 500 MG, UNK
     Route: 048
     Dates: start: 20090421
  27. ADVAIR DISKUS [Concomitant]
     Active Substance: FLUTICASONE PROPIONATE\SALMETEROL XINAFOATE
     Indication: ASTHMA
     Dosage: 250/50 MCG, 1PUFF
     Dates: start: 20090207, end: 20090507
  28. KEFLEX [Concomitant]
     Active Substance: CEPHALEXIN
     Dosage: 500 MG, QID
     Dates: start: 20090323
  29. MOTRIN [Concomitant]
     Active Substance: IBUPROFEN
     Indication: CHEST DISCOMFORT
     Dosage: 200 MG, UNK
  30. NAPROXEN SODIUM. [Concomitant]
     Active Substance: NAPROXEN SODIUM
     Indication: PAIN
     Dosage: 275 MG, 2 TABLETS GIVEN
     Route: 048
     Dates: start: 20090323
  31. OXYCODONE HYDROCHLORIDE AND ACETAMINOPHEN [Concomitant]
     Active Substance: ACETAMINOPHEN\OXYCODONE HYDROCHLORIDE
     Indication: PAIN
     Dosage: 5MG-325MG TABLET, T 2 Q 6 HOURS
     Dates: start: 20090502
  32. ONDANSETRON [Concomitant]
     Active Substance: ONDANSETRON
     Indication: NAUSEA
     Dosage: 4 MG, TID
     Route: 048
     Dates: start: 20090424
  33. SILVADENE [Concomitant]
     Active Substance: SILVER SULFADIAZINE
     Indication: WOUND
  34. NITROFURANTOIN. [Concomitant]
     Active Substance: NITROFURANTOIN
     Dosage: 500 MG, QID
     Dates: start: 20090507
  35. VICODIN [Concomitant]
     Active Substance: ACETAMINOPHEN\HYDROCODONE BITARTRATE
     Indication: PAIN
     Dosage: EVERY 6 HOUR, PRN
     Route: 048
     Dates: start: 20090507
  36. TRAMADOL [Concomitant]
     Active Substance: TRAMADOL
     Indication: PAIN
     Dosage: 50Q. 6. PRN
     Dates: end: 20090307
  37. IMITREX [Concomitant]
     Active Substance: SUMATRIPTAN\SUMATRIPTAN SUCCINATE
     Indication: MIGRAINE
     Dosage: 100 MG, UNK
     Dates: start: 20090220, end: 20090507
  38. PENICILLIN G POTASSIUM. [Concomitant]
     Active Substance: PENICILLIN G POTASSIUM
     Dosage: 500 MG, QID
     Dates: start: 20090419
  39. SILVADENE [Concomitant]
     Active Substance: SILVER SULFADIAZINE
     Indication: SKIN ABRASION
     Dosage: 1 APPLICATION, QD

REACTIONS (9)
  - Emotional distress [None]
  - Thrombosis [None]
  - General physical health deterioration [None]
  - Pain [None]
  - Deep vein thrombosis [None]
  - Peripheral artery thrombosis [None]
  - Injury [None]
  - Abdominal pain [None]
  - Anxiety [None]

NARRATIVE: CASE EVENT DATE: 20090507
